FAERS Safety Report 8382261-X (Version None)
Quarter: 2012Q2

REPORT INFORMATION
  Report Type: 
  Country: None (occurrence: None)
  Receive Date: 20120524
  Receipt Date: 20120518
  Transmission Date: 20120825
  Serious: No
  Sender: FDA-Public Use
  Company Number: US-PFIZER INC-2011247029

PATIENT
  Sex: Female

DRUGS (2)
  1. PREMPRO [Suspect]
     Dosage: 0.625/2.5 MG
     Route: 048
  2. PREMPRO [Suspect]
     Dosage: UNK
     Route: 048

REACTIONS (4)
  - HOT FLUSH [None]
  - FEELING ABNORMAL [None]
  - DRUG INEFFECTIVE [None]
  - IRRITABILITY [None]
